FAERS Safety Report 8074129-3 (Version None)
Quarter: 2012Q1

REPORT INFORMATION
  Report Type: 
  Country: None (occurrence: None)
  Receive Date: 20120126
  Receipt Date: 20120126
  Transmission Date: 20120608
  Serious: Yes (Hospitalization)
  Sender: FDA-Public Use
  Company Number: DE-BAYER-2012-008227

PATIENT
  Age: 48 Year
  Sex: Male

DRUGS (1)
  1. GADAVIST [Suspect]
     Indication: DIAGNOSTIC PROCEDURE
     Dosage: 7.5 ML, ONCE

REACTIONS (5)
  - CONTRAST MEDIA ALLERGY [None]
  - PAIN [None]
  - DRUG HYPERSENSITIVITY [None]
  - SENSORY DISTURBANCE [None]
  - CARDIOVASCULAR INSUFFICIENCY [None]
